FAERS Safety Report 11022980 (Version 2)
Quarter: 2015Q2

REPORT INFORMATION
  Report Type: Spontaneous
  Country: US (occurrence: US)
  Receive Date: 20150413
  Receipt Date: 20150413
  Transmission Date: 20150821
  Serious: No
  Sender: FDA-Public Use
  Company Number: US-ASTELLAS-2014US011800

PATIENT
  Age: 29 Year
  Sex: Female

DRUGS (4)
  1. PROTOPIC [Suspect]
     Active Substance: TACROLIMUS
     Indication: PSORIASIS
  2. DESONIDE. [Suspect]
     Active Substance: DESONIDE
     Indication: PSORIASIS
  3. DESONIDE. [Suspect]
     Active Substance: DESONIDE
     Indication: ECZEMA EYELIDS
     Dosage: UNK UNK, UNKNOWN FREQ.
     Route: 061
  4. PROTOPIC [Suspect]
     Active Substance: TACROLIMUS
     Indication: ECZEMA EYELIDS
     Dosage: UNK UNK, UNKNOWN FREQ.
     Route: 061

REACTIONS (2)
  - Eyelid irritation [Unknown]
  - Off label use [Unknown]
